FAERS Safety Report 14526424 (Version 2)
Quarter: 2018Q1

REPORT INFORMATION
  Report Type: Report from Study
  Country: FR (occurrence: FR)
  Receive Date: 20180213
  Receipt Date: 20180320
  Transmission Date: 20180509
  Serious: Yes (Hospitalization, Other)
  Sender: FDA-Public Use
  Company Number: FR-PFIZER INC-2018056104

PATIENT
  Age: 4 Year
  Sex: Female

DRUGS (6)
  1. VINCRISTINE SULFATE. [Interacting]
     Active Substance: VINCRISTINE SULFATE
     Dosage: 1 MG, UNK
     Route: 042
     Dates: start: 20171229, end: 20180112
  2. PREDNISONE. [Interacting]
     Active Substance: PREDNISONE
     Indication: ACUTE LYMPHOCYTIC LEUKAEMIA
     Dosage: 350 MG, UNK
     Route: 048
     Dates: start: 20171214, end: 20171220
  3. VINCRISTINE SULFATE. [Suspect]
     Active Substance: VINCRISTINE SULFATE
     Indication: ACUTE LYMPHOCYTIC LEUKAEMIA
     Dosage: 1.15 MG, UNK
     Route: 042
     Dates: start: 20171221
  4. PEGASPARGASE [Interacting]
     Active Substance: PEGASPARGASE
     Indication: ACUTE LYMPHOCYTIC LEUKAEMIA
     Dosage: 875 IU, UNK
     Route: 042
     Dates: start: 20171226, end: 20180109
  5. DEXAMETHASONE. [Suspect]
     Active Substance: DEXAMETHASONE
     Indication: ACUTE LYMPHOCYTIC LEUKAEMIA
     Dosage: 84 MG, UNK
     Route: 048
     Dates: start: 20171221, end: 20180111
  6. METHOTREXATE SODIUM. [Interacting]
     Active Substance: METHOTREXATE SODIUM
     Indication: ACUTE LYMPHOCYTIC LEUKAEMIA
     Dosage: 12 MG, UNK
     Route: 037
     Dates: start: 20171214, end: 20180108

REACTIONS (3)
  - Potentiating drug interaction [Recovering/Resolving]
  - Cerebral venous thrombosis [Recovering/Resolving]
  - Seizure [Recovering/Resolving]

NARRATIVE: CASE EVENT DATE: 20180120
